FAERS Safety Report 9593825 (Version 2)
Quarter: 2013Q4

REPORT INFORMATION
  Report Type: Spontaneous
  Country: GB (occurrence: GB)
  Receive Date: 20131004
  Receipt Date: 20131004
  Transmission Date: 20140711
  Serious: Yes (Death, Life-Threatening, Hospitalization)
  Sender: FDA-Public Use
  Company Number: GB-TEVA-381522ISR

PATIENT
  Age: 78 Year
  Sex: Female
  Weight: 50.8 kg

DRUGS (11)
  1. METHOTREXATE [Suspect]
     Indication: RHEUMATOID ARTHRITIS
     Route: 058
     Dates: start: 20101111, end: 20121018
  2. ENBREL [Suspect]
     Indication: RHEUMATOID ARTHRITIS
     Route: 058
     Dates: start: 20120913, end: 20121018
  3. ORAMORPH [Suspect]
  4. PREDNISOLONE [Concomitant]
  5. NYSTATIN [Concomitant]
  6. PARACETAMOL [Concomitant]
  7. FUROSEMIDE [Concomitant]
  8. METHYLPREDNISOLONE [Concomitant]
  9. DIHYDROCODEINE PHOSPHATE [Concomitant]
  10. CALCICHEW D3 [Concomitant]
  11. ALENDRONIC ACID [Concomitant]

REACTIONS (5)
  - Pneumonitis [Fatal]
  - Alveolitis [Fatal]
  - Dyspnoea [Not Recovered/Not Resolved]
  - Pneumocystis jirovecii pneumonia [Unknown]
  - Influenza like illness [Not Recovered/Not Resolved]
